FAERS Safety Report 6642088-3 (Version None)
Quarter: 2010Q1

REPORT INFORMATION
  Report Type: 
  Country: None (occurrence: None)
  Receive Date: 20100316
  Receipt Date: 20100308
  Transmission Date: 20100710
  Serious: Yes (Hospitalization)
  Sender: FDA-Public Use
  Company Number: TPA2010A00947

PATIENT
  Age: 69 Year
  Sex: Male
  Weight: 89.8122 kg

DRUGS (12)
  1. ULORIC [Suspect]
     Indication: GOUT
     Dosage: 40 MG, 1 IN 1 D, PER ORAL; 80 MG, 1 IN 1 D, PER ORAL
     Route: 048
     Dates: start: 20090601, end: 20090701
  2. ULORIC [Suspect]
     Indication: GOUT
     Dosage: 40 MG, 1 IN 1 D, PER ORAL; 80 MG, 1 IN 1 D, PER ORAL
     Route: 048
     Dates: start: 20090701, end: 20100201
  3. ULTRAM [Suspect]
     Indication: DRUG USE FOR UNKNOWN INDICATION
  4. ALLOPURINOL [Concomitant]
  5. HYDROCODONE (HYDROCODONE) [Concomitant]
  6. TOPROL-XL [Concomitant]
  7. CLONIDINE [Concomitant]
  8. LANTUS [Concomitant]
  9. FUROSEMIDE [Concomitant]
  10. GABAPENTIN [Concomitant]
  11. OMEPRAZOLE [Concomitant]
  12. ATACAND [Concomitant]

REACTIONS (2)
  - ACUTE HEPATIC FAILURE [None]
  - CONFUSIONAL STATE [None]
